FAERS Safety Report 18740504 (Version 2)
Quarter: 2021Q1

REPORT INFORMATION
  Report Type: Report from Study
  Country: FR (occurrence: FR)
  Receive Date: 20210114
  Receipt Date: 20210120
  Transmission Date: 20210419
  Serious: Yes (Hospitalization)
  Sender: FDA-Public Use
  Company Number: FR-ROCHE-2744960

PATIENT
  Sex: Female
  Weight: 45 kg

DRUGS (4)
  1. CARBOPLATIN. [Suspect]
     Active Substance: CARBOPLATIN
     Indication: CERVIX CANCER METASTATIC
     Route: 042
     Dates: start: 20201124, end: 20201214
  2. BEVACIZUMAB. [Suspect]
     Active Substance: BEVACIZUMAB
     Indication: CERVIX CANCER METASTATIC
     Route: 042
     Dates: start: 20201214, end: 20201214
  3. INNOHEP [Concomitant]
     Active Substance: TINZAPARIN SODIUM
     Route: 058
     Dates: start: 202010
  4. PACLITAXEL. [Suspect]
     Active Substance: PACLITAXEL
     Indication: CERVIX CANCER METASTATIC
     Route: 042
     Dates: start: 20201124, end: 20201214

REACTIONS (1)
  - Enterovesical fistula [Not Recovered/Not Resolved]

NARRATIVE: CASE EVENT DATE: 20201219
